FAERS Safety Report 22741652 (Version 5)
Quarter: 2023Q4

REPORT INFORMATION
  Report Type: Report from Study
  Country: MX (occurrence: MX)
  Receive Date: 20230724
  Receipt Date: 20231121
  Transmission Date: 20240110
  Serious: Yes (Other)
  Sender: FDA-Public Use
  Company Number: MX-002147023-NVSC2022MX187941

PATIENT
  Sex: Female
  Weight: 58 kg

DRUGS (3)
  1. GILENYA [Suspect]
     Active Substance: FINGOLIMOD HYDROCHLORIDE
     Indication: Multiple sclerosis
     Dosage: 0.5 MG, QD, BY MOUTH
     Route: 048
     Dates: start: 202108
  2. GILENYA [Suspect]
     Active Substance: FINGOLIMOD HYDROCHLORIDE
     Dosage: 0.5 MG, QD, BY MOUTH
     Route: 048
     Dates: start: 20211017
  3. TAMSULOSIN [Concomitant]
     Active Substance: TAMSULOSIN
     Indication: Pollakiuria
     Dosage: (STARTED 3 MONTHS AGO)
     Route: 048

REACTIONS (37)
  - Spinal cord injury [Recovered/Resolved with Sequelae]
  - Optic neuritis [Recovering/Resolving]
  - Rhinitis [Not Recovered/Not Resolved]
  - Sensory loss [Recovering/Resolving]
  - Pain [Recovering/Resolving]
  - Decreased immune responsiveness [Not Recovered/Not Resolved]
  - Pyrexia [Recovered/Resolved]
  - Oropharyngeal pain [Recovered/Resolved]
  - Back pain [Recovered/Resolved]
  - Amnesia [Recovering/Resolving]
  - Decreased immune responsiveness [Recovered/Resolved]
  - Discomfort [Unknown]
  - Sensitivity to weather change [Unknown]
  - Movement disorder [Recovered/Resolved]
  - Bladder disorder [Recovered/Resolved]
  - Gallbladder disorder [Recovered/Resolved]
  - Feeling cold [Unknown]
  - Weight fluctuation [Not Recovered/Not Resolved]
  - Pain [Unknown]
  - Pain in extremity [Unknown]
  - Rhinalgia [Unknown]
  - Rhinorrhoea [Recovered/Resolved]
  - Clinodactyly [Not Recovered/Not Resolved]
  - Bladder pain [Not Recovered/Not Resolved]
  - Crying [Unknown]
  - Weight decreased [Recovered/Resolved]
  - Weight decreased [Unknown]
  - Cough [Recovered/Resolved]
  - Influenza [Recovered/Resolved]
  - Sinusitis [Not Recovered/Not Resolved]
  - Headache [Unknown]
  - Influenza [Unknown]
  - Hypoaesthesia [Recovered/Resolved]
  - Hypoaesthesia [Recovered/Resolved]
  - Muscle contracture [Recovered/Resolved]
  - Bone pain [Recovered/Resolved]
  - Pain in extremity [Recovered/Resolved]

NARRATIVE: CASE EVENT DATE: 20220101
